FAERS Safety Report 5374804-5 (Version None)
Quarter: 2007Q2

REPORT INFORMATION
  Report Type: 
  Country: None (occurrence: None)
  Receive Date: 20070629
  Receipt Date: 20070621
  Transmission Date: 20071010
  Serious: Yes (Other)
  Sender: FDA-Public Use
  Company Number: A0653699A

PATIENT
  Age: 31 Year
  Sex: Female

DRUGS (5)
  1. LAMICTAL [Suspect]
     Indication: BIPOLAR DISORDER
     Dosage: 200MG PER DAY
     Route: 048
     Dates: start: 20061201
  2. LITHIUM CARBONATE [Suspect]
     Indication: BIPOLAR I DISORDER
     Dosage: 1500MG PER DAY
     Route: 048
     Dates: end: 20070430
  3. AMBIEN [Concomitant]
  4. SYNTHROID [Concomitant]
  5. EMSAM [Concomitant]
     Route: 062

REACTIONS (4)
  - ALOPECIA [None]
  - ANISOCYTOSIS [None]
  - HYPOCHROMASIA [None]
  - WHITE BLOOD CELL COUNT DECREASED [None]
